FAERS Safety Report 9734957 (Version 2)
Quarter: 2014Q1

REPORT INFORMATION
  Report Type: Spontaneous
  Country: US (occurrence: US)
  Receive Date: 20131206
  Receipt Date: 20140303
  Transmission Date: 20141002
  Serious: No
  Sender: FDA-Public Use
  Company Number: US-PFIZER INC-2013345964

PATIENT
  Age: 55 Year
  Sex: Female
  Weight: 58.05 kg

DRUGS (7)
  1. XELJANZ [Suspect]
     Indication: RHEUMATOID ARTHRITIS
     Dosage: 5 MG, 2X/DAY
     Route: 048
     Dates: start: 20130805
  2. LEFLUNOMIDE [Concomitant]
     Dosage: 10 MG, UNK
  3. PAXIL [Concomitant]
     Dosage: 10 MG, UNK
  4. XANAX [Concomitant]
     Dosage: 0.25 MG, UNK
  5. CALCIUM [Concomitant]
     Dosage: 500
  6. VITAMIN D [Concomitant]
     Dosage: 1000 IU, UNK
  7. VITAMIN E [Concomitant]
     Dosage: 1000 IU, UNK

REACTIONS (2)
  - Drug ineffective [Unknown]
  - Arthritis [Unknown]
